FAERS Safety Report 13610961 (Version 1)
Quarter: 2017Q2

REPORT INFORMATION
  Report Type: Spontaneous
  Country: US (occurrence: US)
  Receive Date: 20170605
  Receipt Date: 20170605
  Transmission Date: 20170830
  Serious: No
  Sender: FDA-Public Use
  Company Number: None

PATIENT
  Age: 68 Year
  Sex: Female
  Weight: 104.33 kg

DRUGS (13)
  1. HCTZ [Concomitant]
     Active Substance: HYDROCHLOROTHIAZIDE
  2. COQ10 [Concomitant]
     Active Substance: UBIDECARENONE
  3. LISINOPRIL. [Concomitant]
     Active Substance: LISINOPRIL
  4. TYLENOL [Concomitant]
     Active Substance: ACETAMINOPHEN
  5. VITAMIN D3 [Concomitant]
     Active Substance: CHOLECALCIFEROL
  6. PROBIOTIC [Concomitant]
     Active Substance: PROBIOTICS NOS
  7. RISEDRONATE SODIUM 150MG SUBSTITUTE FOR ACTONEL 150MG TABLET [Suspect]
     Active Substance: RISEDRONATE SODIUM
     Indication: OSTEOPOROSIS
     Route: 048
     Dates: start: 20170513, end: 20170513
  8. BYSTOLIC [Concomitant]
     Active Substance: NEBIVOLOL HYDROCHLORIDE
  9. OCUVITE [Concomitant]
     Active Substance: VITAMINS
  10. CALTRATE [Concomitant]
     Active Substance: CALCIUM CARBONATE
  11. VITAMIN D3 [Concomitant]
     Active Substance: CHOLECALCIFEROL
  12. TRAMADOL HCL [Concomitant]
     Active Substance: TRAMADOL HYDROCHLORIDE
  13. LYRICA [Concomitant]
     Active Substance: PREGABALIN

REACTIONS (8)
  - Decreased appetite [None]
  - Erythema [None]
  - Dizziness [None]
  - Dysgeusia [None]
  - Chills [None]
  - Weight decreased [None]
  - Oral herpes [None]
  - Peripheral swelling [None]

NARRATIVE: CASE EVENT DATE: 20170513
